FAERS Safety Report 6841580-6 (Version None)
Quarter: 2010Q3

REPORT INFORMATION
  Report Type: 
  Country: None (occurrence: None)
  Receive Date: 20100714
  Receipt Date: 20100701
  Transmission Date: 20110219
  Serious: Yes (Other)
  Sender: FDA-Public Use
  Company Number: KR-PFIZER INC-2010081983

PATIENT
  Age: 28 Year
  Sex: Female

DRUGS (4)
  1. XALATAN [Suspect]
     Indication: OCULAR HYPERTENSION
     Route: 047
  2. BRIMONIDINE TARTRATE [Suspect]
     Indication: OCULAR HYPERTENSION
  3. COMBIGAN [Suspect]
     Indication: OCULAR HYPERTENSION
  4. AZOPT [Suspect]
     Indication: OCULAR HYPERTENSION

REACTIONS (1)
  - INTRAOCULAR PRESSURE FLUCTUATION [None]
